FAERS Safety Report 7793464-7 (Version None)
Quarter: 2011Q4

REPORT INFORMATION
  Report Type: 
  Country: None (occurrence: None)
  Receive Date: 20111003
  Receipt Date: 20110928
  Transmission Date: 20120403
  Serious: Yes (Death, Other)
  Sender: FDA-Public Use
  Company Number: PHHY2011GB51517

PATIENT
  Age: 82 Year
  Sex: Male

DRUGS (11)
  1. AMITRIPTYLINE HCL [Concomitant]
     Dosage: 10 MG, QD
     Route: 048
  2. SIMVASTATIN [Concomitant]
     Dosage: 40 MG, QD
     Route: 048
  3. METFORMIN HCL [Suspect]
     Dosage: 850 MG, TID
     Route: 048
     Dates: start: 20110309
  4. AMOXICILLIN AND CLAVULANATE POTASSIUM [Concomitant]
     Indication: RENAL FAILURE
     Dosage: 1.2 G, BID
     Route: 042
  5. LEVOTHYROXINE [Concomitant]
     Dosage: 25 UG, QD
     Route: 048
  6. FUROSEMIDE [Concomitant]
     Dosage: 40 MG, QD
     Route: 048
  7. ISMN [Concomitant]
     Dosage: 20 MG, BID
     Route: 048
  8. INDORAMIN [Concomitant]
     Dosage: 20 MG, QD
     Route: 048
  9. RAMIPRIL [Concomitant]
     Dosage: 2.5 MG, QD
     Route: 048
  10. ASPIRIN [Concomitant]
     Dosage: 75 MG, UNK
     Route: 048
  11. LEVETIRACETAM [Concomitant]
     Dosage: 750 MG, QD
     Route: 048

REACTIONS (10)
  - DIARRHOEA [None]
  - UNRESPONSIVE TO STIMULI [None]
  - ATRIOVENTRICULAR BLOCK FIRST DEGREE [None]
  - DEHYDRATION [None]
  - CARDIAC ARREST [None]
  - PERIPHERAL COLDNESS [None]
  - LACTIC ACIDOSIS [None]
  - RENAL FAILURE [None]
  - BRADYCARDIA [None]
  - VOMITING [None]
